FAERS Safety Report 4797229-X (Version None)
Quarter: 2005Q4

REPORT INFORMATION
  Report Type: 
  Country: None (occurrence: None)
  Receive Date: 20051013
  Receipt Date: 20050906
  Transmission Date: 20060501
  Serious: Yes (Hospitalization)
  Sender: FDA-Public Use
  Company Number: GB-BRISTOL-MYERS SQUIBB COMPANY-13099858

PATIENT
  Age: 56 Year
  Sex: Male

DRUGS (2)
  1. CISPLATIN [Suspect]
     Indication: SQUAMOUS CELL CARCINOMA
     Route: 042
     Dates: start: 20050721
  2. RADIOTHERAPY [Suspect]
     Indication: SQUAMOUS CELL CARCINOMA

REACTIONS (2)
  - MUCOSAL INFLAMMATION [None]
  - SUICIDE ATTEMPT [None]
